FAERS Safety Report 4551781-8 (Version None)
Quarter: 2005Q1

REPORT INFORMATION
  Report Type: 
  Country: None (occurrence: None)
  Receive Date: 20050113
  Receipt Date: 20050104
  Transmission Date: 20050727
  Serious: Yes (Other)
  Sender: FDA-Public Use
  Company Number: GB-GLAXOSMITHKLINE-B0363352A

PATIENT
  Age: 51 Year
  Sex: Male

DRUGS (1)
  1. RANITIDINE [Suspect]
     Indication: DYSPEPSIA
     Dosage: 300MG PER DAY
     Route: 048
     Dates: start: 20041001, end: 20041107

REACTIONS (4)
  - BRADYCARDIA [None]
  - CHEST PAIN [None]
  - PALLOR [None]
  - SYNCOPE [None]
